FAERS Safety Report 26115747 (Version 2)
Quarter: 2025Q4

REPORT INFORMATION
  Report Type: Spontaneous
  Country: EU (occurrence: EU)
  Receive Date: 20251203
  Receipt Date: 20251230
  Transmission Date: 20260119
  Serious: Yes (Congenital Anomaly, Other)
  Sender: ABBVIE
  Company Number: EU-ABBVIE-6572787

PATIENT
  Age: 28 Day
  Sex: Male

DRUGS (1)
  1. ADALIMUMAB [Suspect]
     Active Substance: ADALIMUMAB
     Indication: Maternal exposure timing unspecified
     Route: 064

REACTIONS (2)
  - Lymphadenopathy [Unknown]
  - Foetal exposure during pregnancy [Unknown]
